FAERS Safety Report 7379112-9 (Version None)
Quarter: 2011Q1

REPORT INFORMATION
  Report Type: 
  Country: None (occurrence: None)
  Receive Date: 20110328
  Receipt Date: 20110301
  Transmission Date: 20110831
  Serious: No
  Sender: FDA-Public Use
  Company Number: US-TYCO HEALTHCARE/MALLINCKRODT-T201100545

PATIENT

DRUGS (6)
  1. TECHNETIUM TC-99M [Suspect]
     Indication: CARDIAC STRESS TEST
     Dosage: 28.5 MCI, SINGLE
     Dates: start: 20110119, end: 20110119
  2. METOPROLOL SUCCINATE [Concomitant]
     Indication: ANGINA PECTORIS
     Dosage: 100 MG, QD
     Route: 048
  3. LISINOPRIL [Concomitant]
     Indication: HYPERTENSION
     Dosage: 10 MG, QD
     Route: 048
  4. THALLOUS CHLORIDE TL-201 [Suspect]
     Indication: CARDIAC STRESS TEST
     Dosage: 3.2 MCI, SINGLE
     Route: 042
     Dates: start: 20110119, end: 20110119
  5. TECHNETIUM TC 99M SESTAMIBI [Suspect]
     Indication: CARDIAC STRESS TEST
     Dosage: UNK
     Route: 042
     Dates: start: 20110119, end: 20110119
  6. AMLODIPINE [Concomitant]
     Indication: HYPERTENSION
     Dosage: 10 MG, QD
     Route: 048

REACTIONS (1)
  - VISUAL IMPAIRMENT [None]
